FAERS Safety Report 10428935 (Version 1)
Quarter: 2014Q3

REPORT INFORMATION
  Report Type: Spontaneous
  Country: US (occurrence: US)
  Receive Date: 20140904
  Receipt Date: 20140904
  Transmission Date: 20150326
  Serious: Yes (Death)
  Sender: FDA-Public Use
  Company Number: US-CIPLA LTD.-2014US01231

PATIENT

DRUGS (6)
  1. CARBOPLATIN. [Suspect]
     Active Substance: CARBOPLATIN
     Indication: EPENDYMOMA MALIGNANT
     Dosage: UNK
  2. ETOPOSIDE. [Suspect]
     Active Substance: ETOPOSIDE
     Indication: EPENDYMOMA MALIGNANT
     Dosage: UNK
  3. CYCLOPHOSPHAMIDE. [Suspect]
     Active Substance: CYCLOPHOSPHAMIDE
     Indication: EPENDYMOMA MALIGNANT
     Dosage: UNK
  4. VINCRISTINE [Suspect]
     Active Substance: VINCRISTINE
     Indication: EPENDYMOMA MALIGNANT
  5. RADIOTHERAPY [Suspect]
     Active Substance: RADIATION THERAPY
     Indication: EPENDYMOMA MALIGNANT
  6. CISPLATIN. [Suspect]
     Active Substance: CISPLATIN
     Indication: EPENDYMOMA MALIGNANT
     Dosage: UNK

REACTIONS (2)
  - Drug ineffective [Fatal]
  - Disease progression [Fatal]
